FAERS Safety Report 22630841 (Version 1)
Quarter: 2023Q2

REPORT INFORMATION
  Report Type: Spontaneous
  Country: US (occurrence: None)
  Receive Date: 20230622
  Receipt Date: 20230622
  Transmission Date: 20230722
  Serious: No
  Sender: FDA-Public Use
  Company Number: None

PATIENT

DRUGS (8)
  1. LEVOTHYROXINE [Suspect]
     Active Substance: LEVOTHYROXINE
  2. TYLENOL [Suspect]
     Active Substance: ACETAMINOPHEN
  3. AMLODIPINE [Suspect]
     Active Substance: AMLODIPINE BESYLATE
  4. BENAZEPRIL [Suspect]
     Active Substance: BENAZEPRIL HYDROCHLORIDE
  5. CEPHALEXIN [Suspect]
     Active Substance: CEPHALEXIN
  6. SENNA [Suspect]
     Active Substance: SENNA LEAF\SENNOSIDES\SENNOSIDES A AND B
  7. ZOLOFT [Suspect]
     Active Substance: SERTRALINE HYDROCHLORIDE
  8. MIDODRINE [Suspect]
     Active Substance: MIDODRINE

REACTIONS (20)
  - Fall [None]
  - Blood pressure decreased [None]
  - Dysphagia [None]
  - Hallucination [None]
  - Abnormal behaviour [None]
  - Dyskinesia [None]
  - Agitation [None]
  - Respiration abnormal [None]
  - Medication error [None]
  - Product dose omission issue [None]
  - Confusional state [None]
  - Dysstasia [None]
  - Gait inability [None]
  - Lethargy [None]
  - Wrong patient received product [None]
  - Medical device monitoring error [None]
  - Product administration error [None]
  - Product dispensing error [None]
  - Therapy interrupted [None]
  - Blood glucose decreased [None]

NARRATIVE: CASE EVENT DATE: 20221016
